FAERS Safety Report 5041107-8 (Version None)
Quarter: 2006Q2

REPORT INFORMATION
  Report Type: 
  Country: None (occurrence: None)
  Receive Date: 20060601
  Receipt Date: 20060601
  Transmission Date: 20061013
  Serious: No
  Sender: FDA-Public Use
  Company Number: 2006PV009658

PATIENT
  Age: 53 Year
  Sex: Female
  Weight: 62.5964 kg

DRUGS (5)
  1. BYETTA [Suspect]
     Indication: DIABETES MELLITUS NON-INSULIN-DEPENDENT
     Dosage: 5 MCG;BID;SC, 5 MCG;BID;SC
     Route: 058
     Dates: start: 20060305, end: 20060403
  2. BYETTA [Suspect]
     Indication: DIABETES MELLITUS NON-INSULIN-DEPENDENT
     Dosage: 5 MCG;BID;SC, 5 MCG;BID;SC
     Route: 058
     Dates: start: 20060403
  3. BYETTA [Suspect]
  4. METFORMIN [Concomitant]
  5. GLUCOPHAGE [Concomitant]

REACTIONS (7)
  - DRUG EFFECT DECREASED [None]
  - DYSPEPSIA [None]
  - FEELING COLD [None]
  - INJECTION SITE PAIN [None]
  - INJECTION SITE URTICARIA [None]
  - NAUSEA [None]
  - WEIGHT DECREASED [None]
